FAERS Safety Report 18437894 (Version 1)
Quarter: 2020Q4

REPORT INFORMATION
  Report Type: Spontaneous
  Country: US (occurrence: US)
  Receive Date: 20201029
  Receipt Date: 20201029
  Transmission Date: 20210114
  Serious: No
  Sender: FDA-Public Use
  Company Number: US-EISAI MEDICAL RESEARCH-EC-2020-082552

PATIENT
  Age: 50 Year
  Sex: Male

DRUGS (1)
  1. DAYVIGO [Suspect]
     Active Substance: LEMBOREXANT
     Indication: INSOMNIA
     Dosage: FREQUENCY UNKNOWN
     Route: 048
     Dates: start: 20200923

REACTIONS (5)
  - Blood pressure increased [Unknown]
  - Abnormal dreams [Unknown]
  - Drug ineffective [Unknown]
  - Muscular weakness [Unknown]
  - Headache [Unknown]

NARRATIVE: CASE EVENT DATE: 20200923
